FAERS Safety Report 18876686 (Version 5)
Quarter: 2021Q2

REPORT INFORMATION
  Report Type: Spontaneous
  Country: CN (occurrence: CN)
  Receive Date: 20210210
  Receipt Date: 20210522
  Transmission Date: 20210717
  Serious: Yes (Hospitalization, Other)
  Sender: FDA-Public Use
  Company Number: CN-JNJFOC-20210211955

PATIENT
  Age: 30 Year
  Sex: Female

DRUGS (1)
  1. REMICADE [Suspect]
     Active Substance: INFLIXIMAB
     Indication: CROHN^S DISEASE
     Route: 042
     Dates: start: 202007

REACTIONS (7)
  - Rheumatoid arthritis [Unknown]
  - Haemorrhoids [Unknown]
  - Dandruff [Not Recovered/Not Resolved]
  - Skin ulcer [Not Recovered/Not Resolved]
  - Rectal haemorrhage [Unknown]
  - Psoriasis [Not Recovered/Not Resolved]
  - Blister infected [Recovered/Resolved]
